FAERS Safety Report 10220300 (Version 2)
Quarter: 2014Q2

REPORT INFORMATION
  Report Type: Spontaneous
  Country: DE (occurrence: DE)
  Receive Date: 20140606
  Receipt Date: 20140606
  Transmission Date: 20141212
  Serious: Yes (Death, Hospitalization, Other)
  Sender: FDA-Public Use
  Company Number: DE-ROCHE-1403039

PATIENT
  Age: 57 Year
  Sex: Male
  Weight: 95 kg

DRUGS (7)
  1. AVASTIN [Suspect]
     Indication: LUNG ADENOCARCINOMA METASTATIC
     Dosage: LAST DOSE PRIOR TO SAE 20/APR/2014.
     Route: 065
     Dates: start: 20140307, end: 20140420
  2. CISPLATIN [Suspect]
     Indication: LUNG ADENOCARCINOMA METASTATIC
     Dosage: LAST DOSE PRIOR TO SAE 20/APR/2014.
     Route: 065
     Dates: start: 20140307, end: 20140420
  3. ALIMTA [Suspect]
     Indication: LUNG ADENOCARCINOMA METASTATIC
     Dosage: LAST DOSE PRIOR TO SAE 20/APR/2014.
     Route: 065
     Dates: start: 20140307, end: 20140420
  4. DEXAMETHASON [Concomitant]
     Dosage: 1-0-1
     Route: 065
  5. KEVATRIL [Concomitant]
     Dosage: 1-0-0
     Route: 065
  6. DIOVAN [Concomitant]
     Dosage: 1-0-0
     Route: 065
  7. BISOPROLOL [Concomitant]
     Dosage: 1-0-0
     Route: 065

REACTIONS (4)
  - Small intestinal perforation [Fatal]
  - Septic shock [Fatal]
  - Multi-organ failure [Fatal]
  - Peritonitis [Unknown]
